FAERS Safety Report 8605042 (Version 3)
Quarter: 2013Q1

REPORT INFORMATION
  Report Type: Report from Study
  Country: FR (occurrence: FR)
  Receive Date: 20120608
  Receipt Date: 20130301
  Transmission Date: 20140127
  Serious: Yes (Other)
  Sender: FDA-Public Use
  Company Number: FR-VERTEX PHARMACEUTICALS INC.-000000000000000810

PATIENT
  Age: 52 Year
  Sex: Female
  Weight: 61 kg

DRUGS (23)
  1. VX-950 (TELAPREVIR) [Suspect]
     Indication: HEPATITIS C
     Dosage: DOSAGE FORM: TABLET
     Route: 048
     Dates: start: 20110808, end: 20111102
  2. COPEGUS [Suspect]
     Indication: HEPATITIS C
     Dosage: DOSAGE FORM: UNSPECIFIED
     Route: 065
     Dates: start: 20111129, end: 20120417
  3. COPEGUS [Suspect]
     Dosage: DOSAGE FORM: UNSPECIFIED
     Route: 065
     Dates: start: 20120417, end: 20120525
  4. COPEGUS [Suspect]
     Dosage: DOSAGE FORM: UNSPECIFIED
     Route: 065
     Dates: start: 20110808, end: 20111010
  5. COPEGUS [Suspect]
     Dosage: DOSAGE FORM: UNSPECIFIED
     Route: 065
     Dates: start: 20110712, end: 20110728
  6. COPEGUS [Suspect]
     Dosage: DOSAGE FORM: UNSPECIFIED
     Route: 065
     Dates: start: 20111010, end: 20111123
  7. PEGASYS [Suspect]
     Indication: HEPATITIS C
     Dosage: DOSAGE FORM: UNSPECIFIED
     Route: 065
     Dates: start: 20110712, end: 20120525
  8. LASILIX [Suspect]
     Indication: OEDEMA
     Dosage: DOSAGE FORM: UNSPECIFIED
     Route: 065
     Dates: start: 20111004, end: 20111124
  9. SEROPLEX [Concomitant]
     Indication: DEPRESSION
     Dosage: DOSAGE FORM: UNSPECIFIED
     Route: 065
     Dates: start: 20110824
  10. SERESTA [Concomitant]
     Indication: DEPRESSION
     Dosage: DOSAGE FORM: UNSPECIFIED
     Route: 065
     Dates: start: 20091030
  11. TRUVADA [Concomitant]
     Indication: HIV INFECTION
     Dosage: DOSAGE FORM: UNSPECIFIED
     Route: 065
     Dates: start: 20070716
  12. REYATAZ [Concomitant]
     Indication: HIV INFECTION
     Dosage: DOSAGE FORM: UNSPECIFIED
     Route: 065
     Dates: start: 20070716, end: 20120124
  13. LEVOTHYROX [Concomitant]
     Indication: HYPERTHYROIDISM
     Dosage: DOSAGE FORM: UNSPECIFIED
     Route: 065
     Dates: start: 20050308
  14. NEORECORMON [Concomitant]
     Indication: ANAEMIA
     Dosage: DOSAGE FORM: UNSPECIFIED
     Route: 065
     Dates: start: 20111004, end: 20120525
  15. MOSCONTIN [Concomitant]
     Indication: DRUG DEPENDENCE
     Dosage: DOSAGE FORM: UNSPECIFIED
     Route: 065
     Dates: start: 20100618, end: 20111027
  16. BACTRIM [Concomitant]
     Indication: CD4 LYMPHOCYTES DECREASED
     Dosage: DOSAGE FORM: UNSPECIFIED
     Route: 065
     Dates: start: 20110906
  17. SKENAN [Concomitant]
     Indication: DRUG DEPENDENCE
     Dosage: DOSAGE FORM: UNSPECIFIED
     Route: 065
     Dates: start: 20111027
  18. MOPRAL [Concomitant]
     Indication: GASTROOESOPHAGEAL REFLUX DISEASE
     Dosage: DOSAGE FORM: UNSPECIFIED
     Route: 065
     Dates: start: 20110809
  19. ISENTRESS [Concomitant]
     Indication: HIV INFECTION
     Dosage: DOSAGE FORM: UNSPECIFIED
     Route: 065
     Dates: start: 20120124
  20. VENTOLIN [Concomitant]
     Indication: CHRONIC OBSTRUCTIVE PULMONARY DISEASE
     Dosage: DOSAGE FORM: UNSPECIFIED
     Route: 065
     Dates: start: 20111103
  21. PROZAC [Concomitant]
     Indication: DEPRESSION
     Dosage: DOSAGE FORM: UNSPECIFIED
     Route: 065
     Dates: start: 20050308, end: 20110524
  22. ATARAX [Concomitant]
     Indication: INSOMNIA
     Dosage: DOSAGE FORM: UNSPECIFIED
     Route: 065
     Dates: start: 20110824, end: 20110906
  23. MOTILIUM [Concomitant]
     Indication: NAUSEA
     Dosage: DOSAGE FORM: UNSPECIFIED
     Route: 065
     Dates: start: 20110808, end: 20110906

REACTIONS (1)
  - Gamma-glutamyltransferase increased [Recovered/Resolved]
